FAERS Safety Report 25123420 (Version 1)
Quarter: 2025Q1

REPORT INFORMATION
  Report Type: Spontaneous
  Country: US (occurrence: None)
  Receive Date: 20250326
  Receipt Date: 20250326
  Transmission Date: 20250408
  Serious: Yes (Hospitalization, Other)
  Sender: ADIENNE PHARMA & BIOTECH
  Company Number: US-ADIENNEP-2025AD000197

PATIENT
  Sex: Male

DRUGS (4)
  1. THIOTEPA [Suspect]
     Active Substance: THIOTEPA
     Indication: Allogenic stem cell transplantation
     Dates: start: 201809, end: 201809
  2. CLOFARABINE [Suspect]
     Active Substance: CLOFARABINE
     Indication: Allogenic stem cell transplantation
     Dates: start: 201809, end: 201809
  3. MELPHALAN [Suspect]
     Active Substance: MELPHALAN
     Indication: Allogenic stem cell transplantation
     Dates: start: 201809, end: 201809
  4. LAPINE T-LYMPHOCYTE IMMUNE GLOBULIN [Suspect]
     Active Substance: LAPINE T-LYMPHOCYTE IMMUNE GLOBULIN
     Indication: Allogenic stem cell transplantation
     Dates: start: 201809, end: 201809

REACTIONS (7)
  - Mucosal inflammation [Unknown]
  - Venoocclusive liver disease [Unknown]
  - Respiratory failure [Unknown]
  - Extradural haematoma [Unknown]
  - Seizure [Unknown]
  - Blood thyroid stimulating hormone increased [Recovered/Resolved]
  - Epilepsy [Unknown]
